FAERS Safety Report 6304074-2 (Version None)
Quarter: 2009Q3

REPORT INFORMATION
  Report Type: 
  Country: None (occurrence: None)
  Receive Date: 20090810
  Receipt Date: 20090810
  Transmission Date: 20100115
  Serious: No
  Sender: FDA-Public Use
  Company Number: None

PATIENT
  Age: 46 Year
  Sex: Female
  Weight: 65.7716 kg

DRUGS (1)
  1. YAZ [Suspect]
     Indication: MENSTRUATION IRREGULAR
     Dosage: 1 TABLET  DAILY PO
     Route: 048
     Dates: start: 20090615, end: 20090815

REACTIONS (3)
  - CHALAZION [None]
  - DRY EYE [None]
  - EYE DISORDER [None]
